FAERS Safety Report 17930681 (Version 7)
Quarter: 2020Q4

REPORT INFORMATION
  Report Type: Spontaneous
  Country: US (occurrence: US)
  Receive Date: 20200623
  Receipt Date: 20201023
  Transmission Date: 20210113
  Serious: No
  Sender: FDA-Public Use
  Company Number: US-PFIZER INC-2020238034

PATIENT
  Age: 11 Year
  Sex: Female
  Weight: 47.63 kg

DRUGS (9)
  1. PRAMOSONE [Concomitant]
     Active Substance: HYDROCORTISONE ACETATE\PRAMOXINE HYDROCHLORIDE
     Dosage: 20 MG, 1X/DAY (SHE DOES THAT TWICE A DAY, ONCE A DAY BY NOW)
  2. GENOTROPIN [Suspect]
     Active Substance: SOMATROPIN
     Dosage: 1.6 MG, DAILY
     Dates: start: 202004
  3. GENOTROPIN [Suspect]
     Active Substance: SOMATROPIN
     Indication: GROWTH HORMONE DEFICIENCY
     Dosage: 1.6 MG, 1X/DAY (NIGHTLY AT BED TIME; PROBABLY AROUND 8 O^CLOCK BED TIME)
     Route: 058
  4. PRAMOSONE [Concomitant]
     Active Substance: HYDROCORTISONE ACETATE\PRAMOXINE HYDROCHLORIDE
     Dosage: 20 MG, 2X/DAY (SHE DOES THAT TWICE A DAY, ONCE A DAY BY NOW)
  5. ADZENYS XR-ODT [Concomitant]
     Active Substance: AMPHETAMINE
     Dosage: 18.5 MG, 1X/DAY (18.5 MG TABLET EVERY MORNING)
  6. PURELAX [Concomitant]
     Active Substance: POLYETHYLENE GLYCOL 3350
     Dosage: 1 DF, 1X/DAY (ONE CAPSULE AND 8 OUNCE OF WATER ONCE A DAY)
  7. CLOBETASOL [Concomitant]
     Active Substance: CLOBETASOL
     Indication: PSORIASIS
     Dosage: UNK
  8. SERTRALINE HCL [Concomitant]
     Active Substance: SERTRALINE HYDROCHLORIDE
     Dosage: 15 MG, 1X/DAY(15 MG ONE TABLET BY NOW EVERY DAY)
  9. FLOVENT [Concomitant]
     Active Substance: FLUTICASONE PROPIONATE
     Dosage: UNK (TWO PARTS IN THE MORNING AND THEN SHE HAS PRIOR )

REACTIONS (5)
  - Prostatomegaly [Unknown]
  - Poor quality product administered [Unknown]
  - Device breakage [Unknown]
  - Drug dose omission by device [Unknown]
  - Product storage error [Unknown]
